FAERS Safety Report 9170043 (Version 1)
Quarter: 2013Q1

REPORT INFORMATION
  Report Type: Spontaneous
  Country: ES (occurrence: None)
  Receive Date: 20130311
  Receipt Date: 20130311
  Transmission Date: 20140127
  Serious: Yes (Hospitalization)
  Sender: FDA-Public Use
  Company Number: SYM-2013-01460

PATIENT
  Age: 66 Year
  Sex: 0

DRUGS (3)
  1. FLUOROURACIL [Suspect]
     Indication: RECTAL ADENOCARCINOMA
  2. OXALIPLATIN [Suspect]
     Indication: RECTAL ADENOCARCINOMA
  3. FOLINIC ACID (FOLINICI ACID) (FOLINIC ACID) [Concomitant]

REACTIONS (4)
  - Anaemia [None]
  - Renal failure acute [None]
  - Platelet count decreased [None]
  - Haemodialysis [None]
